FAERS Safety Report 25943726 (Version 1)
Quarter: 2025Q4

REPORT INFORMATION
  Report Type: Spontaneous
  Country: US (occurrence: US)
  Receive Date: 20251021
  Receipt Date: 20251021
  Transmission Date: 20260118
  Serious: No
  Sender: SOLENO THERAPEUTICS
  Company Number: US-SOLENO THERAPEUTICS, INC.-SOL2025000175

PATIENT
  Age: 20 Year
  Sex: Male
  Weight: 52.2 kg

DRUGS (3)
  1. VYKAT XR [Suspect]
     Active Substance: DIAZOXIDE CHOLINE
     Indication: Prader-Willi syndrome
     Dosage: 75 MILLIGRAM, QD
     Route: 048
     Dates: start: 20250612, end: 20250625
  2. VYKAT XR [Suspect]
     Active Substance: DIAZOXIDE CHOLINE
     Dosage: 150 MILLIGRAM, QD
     Route: 048
     Dates: start: 20250626, end: 20250628
  3. VYKAT XR [Suspect]
     Active Substance: DIAZOXIDE CHOLINE
     Dosage: 75 MILLIGRAM, QD
     Route: 048
     Dates: start: 20250629

REACTIONS (4)
  - Dyspnoea [Recovered/Resolved]
  - Constipation [Recovered/Resolved]
  - Paranoia [Recovered/Resolved]
  - Anxiety [Recovered/Resolved]

NARRATIVE: CASE EVENT DATE: 20250628
